FAERS Safety Report 5302548-4 (Version None)
Quarter: 2007Q2

REPORT INFORMATION
  Report Type: 
  Country: None (occurrence: None)
  Receive Date: 20070419
  Receipt Date: 20070405
  Transmission Date: 20071010
  Serious: Yes (Hospitalization)
  Sender: FDA-Public Use
  Company Number: US-KINGPHARMUSA00001-K200700459

PATIENT

DRUGS (1)
  1. PRALIDOXIME CHLORIDE AUTO-INJECTOR [Suspect]
     Dosage: UNK, SINGLE
     Dates: start: 20070329, end: 20070329

REACTIONS (4)
  - ACCIDENTAL EXPOSURE [None]
  - INJECTION SITE ANAESTHESIA [None]
  - INJECTION SITE PAIN [None]
  - INJECTION SITE VESICLES [None]
